FAERS Safety Report 24378852 (Version 2)
Quarter: 2024Q4

REPORT INFORMATION
  Report Type: Spontaneous
  Country: US (occurrence: US)
  Receive Date: 20240930
  Receipt Date: 20241015
  Transmission Date: 20250114
  Serious: No
  Sender: TOLMAR
  Company Number: US-TOLMAR, INC.-24US052580

PATIENT

DRUGS (2)
  1. ELIGARD [Suspect]
     Active Substance: LEUPROLIDE ACETATE
     Indication: Occupational exposure to product
     Dosage: UNK
  2. ELIGARD [Suspect]
     Active Substance: LEUPROLIDE ACETATE
     Indication: Occupational exposure to product
     Dosage: UNK

REACTIONS (2)
  - Occupational exposure to product [Unknown]
  - Injury associated with device [Unknown]
